FAERS Safety Report 9428843 (Version 1)
Quarter: 2013Q3

REPORT INFORMATION
  Report Type: Report from Study
  Country: US (occurrence: US)
  Receive Date: 20130730
  Receipt Date: 20130730
  Transmission Date: 20140515
  Serious: No
  Sender: FDA-Public Use
  Company Number: US-ABBOTT-13P-163-1038803-00

PATIENT
  Sex: Male
  Weight: 108.96 kg

DRUGS (11)
  1. NIASPAN (COATED) [Suspect]
     Indication: BLOOD TRIGLYCERIDES INCREASED
     Dosage: AT BEDTIME
  2. NIASPAN (COATED) [Suspect]
     Indication: BLOOD CHOLESTEROL INCREASED
     Dosage: QHS
  3. ZIAC [Concomitant]
     Indication: PRODUCT USED FOR UNKNOWN INDICATION
  4. METFORMIN [Concomitant]
     Indication: PRODUCT USED FOR UNKNOWN INDICATION
  5. LIPITOR [Concomitant]
     Indication: PRODUCT USED FOR UNKNOWN INDICATION
  6. ULORIC [Concomitant]
     Indication: PRODUCT USED FOR UNKNOWN INDICATION
  7. GELNIQUE [Concomitant]
     Indication: PRODUCT USED FOR UNKNOWN INDICATION
  8. LISINOPRIL [Concomitant]
     Indication: PRODUCT USED FOR UNKNOWN INDICATION
  9. RHINOCORT [Concomitant]
     Indication: PRODUCT USED FOR UNKNOWN INDICATION
  10. ONGLYZA [Concomitant]
     Indication: PRODUCT USED FOR UNKNOWN INDICATION
  11. ASA [Concomitant]
     Indication: PRODUCT USED FOR UNKNOWN INDICATION

REACTIONS (1)
  - Flushing [Not Recovered/Not Resolved]
